FAERS Safety Report 6784478-4 (Version None)
Quarter: 2010Q2

REPORT INFORMATION
  Report Type: 
  Country: None (occurrence: None)
  Receive Date: 20100622
  Receipt Date: 20100618
  Transmission Date: 20101027
  Serious: Yes (Hospitalization, Other)
  Sender: FDA-Public Use
  Company Number: US-ELI_LILLY_AND_COMPANY-US201004003591

PATIENT
  Sex: Male
  Weight: 191.84 kg

DRUGS (35)
  1. BYETTA [Suspect]
     Indication: TYPE 2 DIABETES MELLITUS
     Dosage: 5 UG, 2/D
     Route: 058
     Dates: start: 20080918, end: 20081013
  2. BYETTA [Suspect]
     Dosage: 10 UG, 2/D
     Route: 058
     Dates: start: 20081013
  3. BUMEX [Concomitant]
     Dosage: 1 MG, DAILY (1/D)
  4. ASPIRIN [Concomitant]
     Dosage: 325 MG, DAILY (1/D)
  5. OXYBUTYNIN CHLORIDE [Concomitant]
     Dosage: 5 MG, 2/D
  6. ZOCOR [Concomitant]
     Dosage: 80 MG, DAILY (1/D)
  7. LIPITOR [Concomitant]
  8. METOCLOPRAM GI [Concomitant]
     Dosage: 10 MG, 2/D
  9. HUMULIN N [Concomitant]
     Dosage: 300 U, UNK
  10. HUMULIN N [Concomitant]
     Dosage: 40 U, EACH MORNING
  11. HUMULIN N [Concomitant]
     Dosage: 45 U, DAILY (1/D)
  12. HUMULIN N [Concomitant]
     Dosage: 45 U, EACH EVENING
  13. HUMULIN N [Concomitant]
     Dosage: 50 U, 3/D
  14. HUMULIN N [Concomitant]
     Dosage: 40 U, 3/D
  15. HUMULIN R [Concomitant]
     Dosage: 300 U, UNK
  16. HUMULIN R [Concomitant]
     Dosage: 40 U, EACH MORNING
  17. HUMULIN R [Concomitant]
     Dosage: 45 U, DAILY (1/D)
  18. HUMULIN R [Concomitant]
     Dosage: 45 U, EACH EVENING
  19. HUMULIN R [Concomitant]
     Dosage: 50 U, 3/D
  20. LOVAZA [Concomitant]
     Dosage: 1000 MG, UNK
  21. ALBUTEROL SULFATE [Concomitant]
     Dosage: 0.083 %, 4/D
  22. PROAIR HFA [Concomitant]
     Dosage: UNK, AS NEEDED
  23. PROPOXYPHENE HCL AND ACETAMINOPHEN [Concomitant]
     Dosage: UNK, AS NEEDED
  24. SILODOSIN [Concomitant]
     Dosage: 8 MG, DAILY (1/D)
  25. NOVOLIN 70/30 [Concomitant]
     Dosage: 40 U, 3/D
     Dates: start: 20081231
  26. TAMSULOSIN HCL [Concomitant]
     Dosage: 0.4 MG, DAILY (1/D)
     Dates: start: 20100408
  27. ZITHROMAX [Concomitant]
     Dosage: 250 MG, UNK
     Dates: start: 20080918, end: 20081013
  28. ZITHROMAX [Concomitant]
     Dosage: 250 MG, DAILY (1/D)
     Dates: start: 20081208, end: 20081231
  29. ZITHROMAX [Concomitant]
     Dosage: 250 MG, DAILY (1/D)
     Dates: start: 20090218, end: 20090421
  30. ZITHROMAX [Concomitant]
     Dosage: 250 MG, DAILY (1/D)
     Dates: start: 20091228, end: 20100205
  31. ZITHROMAX [Concomitant]
     Dosage: 250 MG, DAILY (1/D)
     Dates: start: 20100205, end: 20100225
  32. AMOXICILLIN [Concomitant]
     Dosage: 500 MG, 3/D
     Dates: start: 20100218, end: 20100225
  33. CITALOPRAM [Concomitant]
     Dosage: 20 MG, DAILY (1/D)
     Dates: start: 20091008, end: 20091105
  34. NAMENDA [Concomitant]
     Dosage: 10 MG, DAILY (1/D)
     Dates: start: 20081231, end: 20091008
  35. PROCHLORPERAZINE [Concomitant]
     Dosage: 25 MG, AS NEEDED
     Route: 054
     Dates: start: 20090206, end: 20090709

REACTIONS (12)
  - ACCIDENTAL OVERDOSE [None]
  - BLOOD GLUCOSE INCREASED [None]
  - DRUG INEFFECTIVE [None]
  - FALL [None]
  - MALABSORPTION FROM INJECTION SITE [None]
  - NEPHROGENIC ANAEMIA [None]
  - OBSTRUCTIVE UROPATHY [None]
  - OEDEMA PERIPHERAL [None]
  - OFF LABEL USE [None]
  - PAIN [None]
  - RENAL FAILURE CHRONIC [None]
  - WEIGHT DECREASED [None]
